FAERS Safety Report 9208353 (Version 2)
Quarter: 2013Q4

REPORT INFORMATION
  Report Type: Spontaneous
  Country: US (occurrence: US)
  Receive Date: 20130404
  Receipt Date: 20131202
  Transmission Date: 20140711
  Serious: No
  Sender: FDA-Public Use
  Company Number: US-009507513-1304USA001361

PATIENT
  Sex: Female
  Weight: 63.49 kg

DRUGS (6)
  1. ASMANEX TWISTHALER [Suspect]
     Indication: ASTHMA
     Dosage: 2 - 3 PUFF, 440 - 660 MG, QD
     Route: 048
     Dates: start: 20130312, end: 2013
  2. ASMANEX TWISTHALER [Suspect]
     Indication: HYPERSENSITIVITY
  3. CLARINEX [Suspect]
     Indication: ASTHMA
  4. CLARINEX [Suspect]
     Indication: HYPERSENSITIVITY
  5. XOPENEX [Concomitant]
     Indication: ASTHMA
  6. XOPENEX [Concomitant]
     Indication: HYPERSENSITIVITY

REACTIONS (1)
  - Drug ineffective [Unknown]
